FAERS Safety Report 8099240-2 (Version None)
Quarter: 2012Q1

REPORT INFORMATION
  Report Type: 
  Country: None (occurrence: None)
  Receive Date: 20120129
  Receipt Date: 20111006
  Transmission Date: 20120608
  Serious: No
  Sender: FDA-Public Use
  Company Number: US-ABBOTT-11P-163-0861280-00

PATIENT
  Sex: Male
  Weight: 97.61 kg

DRUGS (5)
  1. HUMIRA [Suspect]
     Dates: start: 20110801
  2. HUMIRA [Suspect]
     Indication: RHEUMATOID ARTHRITIS
     Dates: start: 20110501, end: 20110601
  3. CELEBREX [Concomitant]
     Indication: RHEUMATOID ARTHRITIS
  4. UNKNOWN MEDICATION [Concomitant]
     Indication: HYPERTENSION
  5. ALLEGRA [Concomitant]
     Indication: HYPERSENSITIVITY

REACTIONS (4)
  - ARTHROPOD BITE [None]
  - INJECTION SITE ERYTHEMA [None]
  - INJECTION SITE REACTION [None]
  - PRURITUS [None]
